FAERS Safety Report 4939191-2 (Version None)
Quarter: 2006Q1

REPORT INFORMATION
  Report Type: 
  Country: None (occurrence: None)
  Receive Date: 20060105
  Receipt Date: 20060105
  Transmission Date: 20060701
  Serious: Yes (Death)
  Sender: FDA-Public Use
  Company Number: None

PATIENT
  Sex: Male
  Weight: 74.8435 kg

DRUGS (1)
  1. ORTHO EVRA [Suspect]

REACTIONS (1)
  - DEATH [None]
